FAERS Safety Report 9119086 (Version 1)
Quarter: 2013Q1

REPORT INFORMATION
  Report Type: Spontaneous
  Country: US (occurrence: US)
  Receive Date: 20130226
  Receipt Date: 20130226
  Transmission Date: 20140127
  Serious: No
  Sender: FDA-Public Use
  Company Number: US-BIOGENIDEC-2013BI016464

PATIENT
  Age: 63 Year
  Sex: Female

DRUGS (2)
  1. TYSABRI [Suspect]
     Indication: MULTIPLE SCLEROSIS
     Route: 042
     Dates: start: 20080319, end: 20101221
  2. TYSABRI [Suspect]
     Indication: MULTIPLE SCLEROSIS
     Route: 042
     Dates: start: 20111111, end: 20121214

REACTIONS (5)
  - Speech disorder [Recovered/Resolved]
  - Blindness unilateral [Not Recovered/Not Resolved]
  - Delirium [Unknown]
  - Enteritis infectious [Not Recovered/Not Resolved]
  - Kidney infection [Not Recovered/Not Resolved]
